FAERS Safety Report 18340009 (Version 1)
Quarter: 2020Q4

REPORT INFORMATION
  Report Type: Spontaneous
  Country: US (occurrence: US)
  Receive Date: 20201002
  Receipt Date: 20201002
  Transmission Date: 20210113
  Serious: Yes (Other)
  Sender: FDA-Public Use
  Company Number: US-TEVA-2020-US-1835684

PATIENT
  Sex: Male

DRUGS (6)
  1. DILAUDID [Suspect]
     Active Substance: HYDROMORPHONE HYDROCHLORIDE
     Indication: SURGERY
     Route: 065
  2. OXYCONTIN [Suspect]
     Active Substance: OXYCODONE HYDROCHLORIDE
     Indication: SURGERY
     Route: 065
  3. TRAMADOL ER [Suspect]
     Active Substance: TRAMADOL HYDROCHLORIDE
     Indication: SURGERY
     Route: 065
  4. OXYCODONE ER [Suspect]
     Active Substance: OXYCODONE
     Indication: SURGERY
     Route: 065
  5. HYDROMORPHONE IR [Suspect]
     Active Substance: HYDROMORPHONE HYDROCHLORIDE
     Indication: SURGERY
     Route: 065
  6. MORPHINE (MORPHINE) [Suspect]
     Active Substance: MORPHINE
     Indication: SURGERY
     Route: 065

REACTIONS (3)
  - Dependence [Unknown]
  - Surgery [Unknown]
  - Overdose [Unknown]
